FAERS Safety Report 24441610 (Version 1)
Quarter: 2024Q4

REPORT INFORMATION
  Report Type: Spontaneous
  Country: US (occurrence: US)
  Receive Date: 20241016
  Receipt Date: 20241016
  Transmission Date: 20250114
  Serious: Yes (Hospitalization, Other)
  Sender: ZYDUS PHARM
  Company Number: US-CADILA HEALTHCARE LIMITED-US-ZYDUS-113444

PATIENT

DRUGS (13)
  1. AMLODIPINE [Suspect]
     Active Substance: AMLODIPINE BESYLATE
     Indication: Hypertension
     Dosage: UNK
     Route: 065
  2. NOREPINEPHRINE BITARTRATE [Suspect]
     Active Substance: NOREPINEPHRINE BITARTRATE
     Indication: Shock
     Dosage: UNK
     Route: 065
  3. CALCIUM CHLORIDE [Concomitant]
     Active Substance: CALCIUM CHLORIDE
     Indication: Shock
     Dosage: UNK
     Route: 065
  4. ATROPINE [Concomitant]
     Active Substance: ATROPINE
     Indication: Shock
     Dosage: UNK, 2 DOSES
     Route: 065
  5. INSULIN NOS [Concomitant]
     Active Substance: INSULIN NOS
     Indication: Shock
     Dosage: UNK
     Route: 065
  6. INSULIN NOS [Concomitant]
     Active Substance: INSULIN NOS
     Dosage: 1U/KG/HR, DRIP
     Route: 065
  7. INSULIN NOS [Concomitant]
     Active Substance: INSULIN NOS
     Dosage: 6 U/KG/HR AT A RATE OF 660 UNITS/HOUR, DRIP
     Route: 065
  8. GLUCAGON [Concomitant]
     Active Substance: GLUCAGON
     Indication: Shock
     Dosage: UNK
     Route: 065
  9. GLUCAGON [Concomitant]
     Active Substance: GLUCAGON
     Dosage: UNK, INCREASED
     Route: 065
  10. EPINEPHRINE [Concomitant]
     Active Substance: EPINEPHRINE
     Indication: Shock
     Dosage: UNK
     Route: 065
  11. VASOPRESSIN [Concomitant]
     Active Substance: VASOPRESSIN
     Indication: Shock
     Dosage: UNK
     Route: 065
  12. DEXTROSE [Concomitant]
     Active Substance: DEXTROSE MONOHYDRATE
     Indication: Shock
     Dosage: UNK, DRIP
     Route: 065
  13. FAT EMULSION NOS [Concomitant]
     Active Substance: EGG PHOSPHOLIPIDS\SAFFLOWER OIL\SOYBEAN OIL
     Indication: Shock
     Dosage: 250 MILLILITER, PROVIDED OVER ONE MINUTE

REACTIONS (4)
  - Shock [Recovering/Resolving]
  - Sinus bradycardia [Recovering/Resolving]
  - Accidental overdose [Unknown]
  - Drug ineffective [Unknown]
